FAERS Safety Report 6452951-4 (Version None)
Quarter: 2009Q4

REPORT INFORMATION
  Report Type: 
  Country: None (occurrence: None)
  Receive Date: 20091117
  Receipt Date: 20091109
  Transmission Date: 20100525
  Serious: Yes (Other)
  Sender: FDA-Public Use
  Company Number: CL-67-2009

PATIENT
  Age: 8 Year
  Weight: 15 kg

DRUGS (1)
  1. ONDANSETRON [Suspect]
     Indication: PREOPERATIVE CARE
     Dosage: 2 MG, ONCE, INTRAVENOUS
     Route: 042

REACTIONS (4)
  - APNOEA [None]
  - HEART RATE INCREASED [None]
  - LOSS OF CONSCIOUSNESS [None]
  - SINUS BRADYCARDIA [None]
